FAERS Safety Report 7376954-0 (Version None)
Quarter: 2011Q1

REPORT INFORMATION
  Report Type: 
  Country: None (occurrence: None)
  Receive Date: 20110328
  Receipt Date: 20110315
  Transmission Date: 20110831
  Serious: Yes (Hospitalization, Other)
  Sender: FDA-Public Use
  Company Number: US-BIOGENIDEC-2011BI009917

PATIENT
  Age: 30 Year
  Sex: Male

DRUGS (1)
  1. TYSABRI [Suspect]
     Indication: MULTIPLE SCLEROSIS
     Route: 042
     Dates: start: 20090925, end: 20110103

REACTIONS (5)
  - CONVULSION [None]
  - TREMOR [None]
  - MUSCLE SPASTICITY [None]
  - DISORIENTATION [None]
  - DRUG INEFFECTIVE [None]
